FAERS Safety Report 9296267 (Version 1)
Quarter: 2013Q2

REPORT INFORMATION
  Report Type: Spontaneous
  Country: AU (occurrence: AU)
  Receive Date: 20130517
  Receipt Date: 20130517
  Transmission Date: 20140414
  Serious: Yes (Other)
  Sender: FDA-Public Use
  Company Number: AU-ASTRAZENECA-2013SE32857

PATIENT
  Age: 82 Year
  Sex: Male

DRUGS (3)
  1. LIGNOCAINE [Suspect]
     Dosage: 4 ML OF MIXTURE OF 1 % LIGNOCAINE AND 2 % ROPIVACAINE
     Route: 053
  2. ROPIVACAINE [Suspect]
     Dosage: 4 ML OF MIXTURE OF 1 % LIGNOCAINE AND 2 % ROPIVACAINE
     Route: 053
  3. WARFARIN [Concomitant]

REACTIONS (2)
  - Optic neuropathy [Recovered/Resolved]
  - Amaurosis [Recovered/Resolved]
